FAERS Safety Report 23620989 (Version 2)
Quarter: 2024Q1

REPORT INFORMATION
  Report Type: Spontaneous
  Country: BR (occurrence: BR)
  Receive Date: 20240312
  Receipt Date: 20240325
  Transmission Date: 20240410
  Serious: Yes (Other)
  Sender: FDA-Public Use
  Company Number: BR-SA-SAC20240311000041

PATIENT
  Age: 73 Year
  Sex: Female
  Weight: 79.4 kg

DRUGS (15)
  1. THYMOGLOBULIN [Suspect]
     Active Substance: LAPINE T-LYMPHOCYTE IMMUNE GLOBULIN
     Indication: Prophylaxis against transplant rejection
     Dosage: 150 MG, 1X
     Route: 042
     Dates: start: 20240304, end: 20240304
  2. ROCURONIUM BROMIDE [Concomitant]
     Active Substance: ROCURONIUM BROMIDE
     Indication: Anaesthesia
     Dosage: 50 MG
     Dates: start: 20240303, end: 20240303
  3. MORPHINE [Concomitant]
     Active Substance: MORPHINE
     Indication: Anaesthesia
     Dosage: 2 MG
     Dates: start: 20240303, end: 20240303
  4. SEVOFLURANE [Concomitant]
     Active Substance: SEVOFLURANE
     Indication: Anaesthesia
     Dosage: 1ML
     Dates: start: 20240303, end: 20240303
  5. DEXAMETHASONE [Concomitant]
     Active Substance: DEXAMETHASONE
     Indication: Anaesthetic premedication
     Dosage: 10 MG
     Dates: start: 20240303, end: 20240303
  6. PLASMA LYTE [Concomitant]
     Indication: Anaesthetic premedication
     Dosage: 500 ML
     Dates: start: 20240303, end: 20240303
  7. DIPYRONE [Concomitant]
     Active Substance: DIPYRONE
     Indication: Anaesthetic premedication
     Dosage: 2 G
     Dates: start: 20240303, end: 20240303
  8. ONDANSETRON [Concomitant]
     Active Substance: ONDANSETRON
     Indication: Anaesthetic premedication
     Dosage: 4 MG
     Dates: start: 20240303, end: 20240303
  9. CEFTRIAXONE [Concomitant]
     Active Substance: CEFTRIAXONE\CEFTRIAXONE SODIUM
     Indication: Anaesthetic premedication
     Dosage: 2 G
     Dates: start: 20240303, end: 20240303
  10. SODIUM BICARBONATE [Concomitant]
     Active Substance: SODIUM BICARBONATE
     Indication: Anaesthetic premedication
     Dosage: 1 DF
     Dates: start: 20240303, end: 20240303
  11. MAGNESIUM SULFATE [Concomitant]
     Active Substance: MAGNESIUM SULFATE\MAGNESIUM SULFATE HEPTAHYDRATE
     Indication: Anaesthetic premedication
     Dosage: 200 MG
     Dates: start: 20240303, end: 20240303
  12. CALCIUM CHLORIDE [Concomitant]
     Active Substance: CALCIUM CHLORIDE
     Indication: Anaesthetic premedication
     Dosage: 1 G
     Dates: start: 20240303, end: 20240303
  13. NOREPINEPHRINE [Concomitant]
     Active Substance: NOREPINEPHRINE\NOREPINEPHRINE BITARTRATE
     Indication: Hypotension
     Dosage: 8 MG / AMPOULE 4 ML
     Dates: start: 20240303, end: 20240303
  14. ADRENALIN [Concomitant]
     Active Substance: EPINEPHRINE
     Indication: Hypotension
     Dosage: 1 MG/ML AMPOULE 1 ML
     Dates: start: 20240303, end: 20240303
  15. ENCRISE [Concomitant]
     Indication: Hypotension
     Dosage: 20 IU/ML AMPOULE 1 ML
     Dates: start: 20240303, end: 20240303

REACTIONS (3)
  - Systemic inflammatory response syndrome [Recovered/Resolved]
  - Distributive shock [Recovered/Resolved]
  - Shock [Recovered/Resolved]

NARRATIVE: CASE EVENT DATE: 20240304
